FAERS Safety Report 6087786-8 (Version None)
Quarter: 2009Q1

REPORT INFORMATION
  Report Type: 
  Country: None (occurrence: None)
  Receive Date: 20090219
  Receipt Date: 20081231
  Transmission Date: 20090719
  Serious: No
  Sender: FDA-Public Use
  Company Number: WAES 0901USA00034

PATIENT
  Age: 74 Year
  Sex: Female

DRUGS (8)
  1. JANUVIA [Suspect]
     Indication: TYPE 2 DIABETES MELLITUS
     Dosage: 100 MG/DAILY/PO
     Route: 048
     Dates: start: 20080901
  2. ALLEGRA [Concomitant]
  3. ARMOUR THYROID TABLETS [Concomitant]
  4. LASIX [Concomitant]
  5. NASACORT [Concomitant]
  6. NORVASC [Concomitant]
  7. PREVACID [Concomitant]
  8. VAGIFEM [Concomitant]

REACTIONS (2)
  - CHROMATURIA [None]
  - VULVOVAGINAL BURNING SENSATION [None]
